FAERS Safety Report 8471361-1 (Version None)
Quarter: 2012Q2

REPORT INFORMATION
  Report Type: 
  Country: None (occurrence: None)
  Receive Date: 20120627
  Receipt Date: 20120618
  Transmission Date: 20120825
  Serious: Yes (Other)
  Sender: FDA-Public Use
  Company Number: US-ASTRAZENECA-2011SE23880

PATIENT
  Age: 52 Year
  Sex: Female

DRUGS (1)
  1. SYMBICORT [Suspect]
     Indication: ASTHMA
     Route: 055
     Dates: start: 20070101

REACTIONS (3)
  - TOOTH LOSS [None]
  - SPINAL FRACTURE [None]
  - BREAST CANCER STAGE III [None]
